FAERS Safety Report 10531288 (Version 15)
Quarter: 2016Q3

REPORT INFORMATION
  Report Type: Report from Study
  Country: CA (occurrence: CA)
  Receive Date: 20141021
  Receipt Date: 20160817
  Transmission Date: 20161109
  Serious: Yes (Hospitalization, Other)
  Sender: FDA-Public Use
  Company Number: PHHY2014CA111856

PATIENT
  Age: 61 Year
  Sex: Male

DRUGS (1)
  1. SANDOSTATIN LAR DEPOT [Suspect]
     Active Substance: OCTREOTIDE ACETATE
     Indication: NEUROENDOCRINE CARCINOMA METASTATIC
     Dosage: 30 MG, QMO (REPORTED AS EVERY 4 WEEKS)
     Route: 030
     Dates: start: 20140317, end: 20160721

REACTIONS (25)
  - Metastases to lung [Unknown]
  - Metastases to spine [Unknown]
  - Insomnia [Recovering/Resolving]
  - Musculoskeletal chest pain [Unknown]
  - Blood pressure systolic increased [Unknown]
  - Gastrointestinal disorder [Recovering/Resolving]
  - Diarrhoea [Recovering/Resolving]
  - Metastases to chest wall [Unknown]
  - Metastases to liver [Unknown]
  - Back pain [Recovered/Resolved]
  - Liver function test increased [Unknown]
  - Malignant neoplasm progression [Unknown]
  - Blood pressure increased [Unknown]
  - Fatigue [Recovering/Resolving]
  - Weight decreased [Unknown]
  - Paraesthesia [Recovering/Resolving]
  - Bone pain [Not Recovered/Not Resolved]
  - Flushing [Recovering/Resolving]
  - Drug ineffective [Unknown]
  - Metastases to bone [Unknown]
  - Metastases to kidney [Unknown]
  - Sinusitis [Recovering/Resolving]
  - Post procedural infection [Unknown]
  - Metastases to heart [Unknown]
  - Myalgia [Unknown]

NARRATIVE: CASE EVENT DATE: 2014
